FAERS Safety Report 7145166-8 (Version None)
Quarter: 2010Q4

REPORT INFORMATION
  Report Type: 
  Country: None (occurrence: None)
  Receive Date: 20101208
  Receipt Date: 20101206
  Transmission Date: 20110411
  Serious: No
  Sender: FDA-Public Use
  Company Number: DE-SANOFI-AVENTIS-2010SA040840

PATIENT
  Sex: Male

DRUGS (2)
  1. ARAVA [Suspect]
     Route: 048
  2. METOTREXATE [Concomitant]
     Route: 065

REACTIONS (1)
  - DRUG EXPOSURE BEFORE PREGNANCY [None]
